FAERS Safety Report 9746265 (Version 1)
Quarter: 2013Q4

REPORT INFORMATION
  Report Type: Spontaneous
  Country: US (occurrence: None)
  Receive Date: 20131209
  Receipt Date: 20131209
  Transmission Date: 20140711
  Serious: Yes (Hospitalization, Other)
  Sender: FDA-Public Use
  Company Number: None

PATIENT
  Age: 66 Year
  Sex: Female
  Weight: 63.5 kg

DRUGS (1)
  1. FEMARA [Suspect]
     Indication: BREAST CANCER
     Route: 048

REACTIONS (8)
  - Breast cancer [None]
  - Oestrogen receptor assay positive [None]
  - Nervous system disorder [None]
  - Tremor [None]
  - Fall [None]
  - Presyncope [None]
  - Hypoglycaemia [None]
  - Insulinoma [None]
